FAERS Safety Report 14750458 (Version 2)
Quarter: 2018Q3

REPORT INFORMATION
  Report Type: Spontaneous
  Country: JP (occurrence: JP)
  Receive Date: 20180412
  Receipt Date: 20180828
  Transmission Date: 20181010
  Serious: Yes (Other)
  Sender: FDA-Public Use
  Company Number: JP-SUN PHARMACEUTICAL INDUSTRIES LTD-2018R1-169538

PATIENT
  Age: 73 Year
  Sex: Male

DRUGS (5)
  1. IRINOTECAN [Suspect]
     Active Substance: IRINOTECAN
     Indication: NEUROENDOCRINE CARCINOMA
     Dosage: 60 MG/M2, UNK
     Route: 065
     Dates: start: 201508
  2. CISPLATIN. [Suspect]
     Active Substance: CISPLATIN
     Indication: NEUROENDOCRINE CARCINOMA
     Dosage: 60 MG/M2, UNK
     Route: 065
     Dates: start: 201508
  3. PACLITAXEL. [Suspect]
     Active Substance: PACLITAXEL
     Indication: NEUROENDOCRINE CARCINOMA
     Dosage: 80 MG/M2, UNK
     Route: 042
  4. AMRUBICIN [Suspect]
     Active Substance: AMRUBICIN
     Indication: NEUROENDOCRINE CARCINOMA
     Dosage: 40 MG/M2, 3/WEEK (FOR 3 DAYS EVERY 3 WEEKS)
     Route: 065
  5. RAMUCIRUMAB [Suspect]
     Active Substance: RAMUCIRUMAB
     Indication: NEUROENDOCRINE CARCINOMA
     Dosage: 8 MG/KG, UNK
     Route: 042

REACTIONS (3)
  - Palmar-plantar erythrodysaesthesia syndrome [Unknown]
  - Malaise [Unknown]
  - Treatment failure [Unknown]
